FAERS Safety Report 9880564 (Version 1)
Quarter: 2014Q1

REPORT INFORMATION
  Report Type: Spontaneous
  Country: US (occurrence: None)
  Receive Date: 20140206
  Receipt Date: 20140206
  Transmission Date: 20141002
  Serious: Yes (Death)
  Sender: FDA-Public Use
  Company Number: None

PATIENT
  Age: 59 Year
  Sex: Female

DRUGS (2)
  1. SUTENT [Suspect]
     Indication: RENAL CELL CARCINOMA
     Dosage: 1 CAP  DAILY  PO
     Route: 048
     Dates: start: 20131024, end: 20140204
  2. SUTENT 25MG PFIZER [Suspect]
     Indication: RENAL CELL CARCINOMA
     Dosage: 1 CAP PO QD.?10/24/14 TO 2/4/14?

REACTIONS (3)
  - Renal cell carcinoma [None]
  - Malignant neoplasm progression [None]
  - Adverse event [None]
